FAERS Safety Report 24126513 (Version 2)
Quarter: 2024Q3

REPORT INFORMATION
  Report Type: Spontaneous
  Country: US (occurrence: US)
  Receive Date: 20240723
  Receipt Date: 20240724
  Transmission Date: 20241016
  Serious: No
  Sender: JOHNSON AND JOHNSON
  Company Number: US-JNJFOC-20240750974

PATIENT
  Age: 53 Year
  Sex: Female

DRUGS (4)
  1. SPRAVATO [Suspect]
     Active Substance: ESKETAMINE
     Indication: Depression
     Dates: start: 202404
  2. ESTROGENS [Concomitant]
     Active Substance: ESTROGENS
  3. TESTOSTERONE [Concomitant]
     Active Substance: TESTOSTERONE
  4. PROGESTERONE [Concomitant]
     Active Substance: PROGESTERONE

REACTIONS (2)
  - Drug ineffective [Unknown]
  - Anxiety [Unknown]
